FAERS Safety Report 8580941-4 (Version None)
Quarter: 2012Q3

REPORT INFORMATION
  Report Type: 
  Country: None (occurrence: None)
  Receive Date: 20120809
  Receipt Date: 20120806
  Transmission Date: 20120928
  Serious: No
  Sender: FDA-Public Use
  Company Number: US-PFIZER INC-2012191187

PATIENT
  Age: 53 Year
  Sex: Female
  Weight: 81.6 kg

DRUGS (2)
  1. ADVIL PM [Suspect]
     Indication: PAIN
     Dosage: 200 MG, ONCE
     Dates: start: 20120101, end: 20120101
  2. ADVIL PM [Suspect]
     Indication: SLEEP DISORDER

REACTIONS (2)
  - SOMNOLENCE [None]
  - DRUG INEFFECTIVE [None]
